FAERS Safety Report 11840675 (Version 3)
Quarter: 2016Q1

REPORT INFORMATION
  Report Type: Report from Study
  Country: IT (occurrence: IT)
  Receive Date: 20151216
  Receipt Date: 20160226
  Transmission Date: 20160525
  Serious: Yes (Hospitalization)
  Sender: FDA-Public Use
  Company Number: IT-TEVA-618530ISR

PATIENT
  Age: 69 Year
  Sex: Female
  Weight: 66 kg

DRUGS (6)
  1. PF-05212384 [Suspect]
     Active Substance: GEDATOLISIB
     Indication: TRIPLE NEGATIVE BREAST CANCER
     Dosage: 310 MG, WEEKLY
     Route: 042
     Dates: start: 20151124, end: 20151202
  2. TOTALIP [Concomitant]
     Active Substance: ATORVASTATIN
     Route: 065
  3. CISPLATIN. [Suspect]
     Active Substance: CISPLATIN
     Indication: TRIPLE NEGATIVE BREAST CANCER
     Dosage: 128 MG, CYCLIC (DAY 1 EVERY 3 WEEKS )
     Route: 042
     Dates: start: 20151201, end: 20151201
  4. RANITIDINE [Concomitant]
     Active Substance: RANITIDINE\RANITIDINE HYDROCHLORIDE
  5. LOSAZIDE [Concomitant]
  6. BRUFEN [Concomitant]
     Active Substance: IBUPROFEN

REACTIONS (2)
  - Nausea [Recovered/Resolved]
  - Stomatitis [Recovering/Resolving]

NARRATIVE: CASE EVENT DATE: 20151204
